FAERS Safety Report 5692779-6 (Version None)
Quarter: 2008Q2

REPORT INFORMATION
  Report Type: 
  Country: None (occurrence: None)
  Receive Date: 20080401
  Receipt Date: 20080326
  Transmission Date: 20081010
  Serious: Yes (Death, Hospitalization)
  Sender: FDA-Public Use
  Company Number: 163-21880-08020647(2)

PATIENT
  Age: 50 Year
  Sex: Male
  Weight: 71 kg

DRUGS (20)
  1. REVLIMID [Suspect]
     Indication: AMYLOIDOSIS
     Dosage: 15 MG, X 21 DAYS, ORAL
     Route: 048
     Dates: start: 20080112, end: 20080202
  2. DEXAMETHASONE TAB [Suspect]
     Indication: AMYLOIDOSIS
     Dosage: 40 MG, DAYS 1, 8, 15 + 22,
     Dates: start: 20080112, end: 20080202
  3. CYTOXAN [Suspect]
     Indication: AMYLOIDOSIS
     Dosage: 550 MG, DAYS 1, 8, + 15,
     Dates: start: 20080112, end: 20080126
  4. LEVAQUIN [Suspect]
     Indication: COUGH
     Dosage: 250 MG, DAILY, ORAL
     Route: 048
     Dates: start: 20080128, end: 20080131
  5. LEVAQUIN [Suspect]
     Indication: PHARYNGOLARYNGEAL PAIN
     Dosage: 250 MG, DAILY, ORAL
     Route: 048
     Dates: start: 20080128, end: 20080131
  6. HEPARIN [Concomitant]
  7. LASIX [Concomitant]
  8. PROCHLORPERAZINE MALEATE [Concomitant]
  9. ACYCLOVIR [Concomitant]
  10. OMEPRAZOLE [Concomitant]
  11. POTASSIUM CHLORIDE [Concomitant]
  12. ASPIRIN [Concomitant]
  13. INSULIN DRIP (INSULIN) [Concomitant]
  14. PANTOPRAZOLE SODIUM [Concomitant]
  15. HYDROCORTISONE [Concomitant]
  16. FLUDROCORTISONE ACETATE [Concomitant]
  17. NEUPOGEN [Concomitant]
  18. CLOTRIMAZOLE [Concomitant]
  19. DARBEPOETIN (DARBEPOETIN ALFA) [Concomitant]
  20. SYNTHROID [Concomitant]

REACTIONS (12)
  - ATELECTASIS [None]
  - BRADYCARDIA [None]
  - CLOSTRIDIAL INFECTION [None]
  - HYPOTENSION [None]
  - LIPASE INCREASED [None]
  - MULTI-ORGAN FAILURE [None]
  - PNEUMONIA [None]
  - RESPIRATORY FAILURE [None]
  - SEPTIC SHOCK [None]
  - STEVENS-JOHNSON SYNDROME [None]
  - THERAPEUTIC AGENT TOXICITY [None]
  - VENTRICULAR EXTRASYSTOLES [None]
